FAERS Safety Report 5161716-5 (Version None)
Quarter: 2006Q4

REPORT INFORMATION
  Report Type: 
  Country: None (occurrence: None)
  Receive Date: 20061130
  Receipt Date: 20061117
  Transmission Date: 20070319
  Serious: Yes (Hospitalization)
  Sender: FDA-Public Use
  Company Number: FR-ELI_LILLY_AND_COMPANY-FR200611003651

PATIENT
  Age: 91 Year
  Sex: Female

DRUGS (6)
  1. FORTEO [Suspect]
     Indication: OSTEOPOROSIS
     Dosage: 20 UG, DAILY (1/D)
     Route: 058
     Dates: start: 20051108, end: 20061102
  2. FLECAINIDE ACETATE [Concomitant]
     Dates: end: 20061101
  3. ATENOLOL [Concomitant]
     Dates: end: 20061101
  4. FIXICAL VITAMINE D3 [Concomitant]
  5. STEROGYL [Concomitant]
  6. ANALGESICS [Concomitant]

REACTIONS (9)
  - ACUTE PULMONARY OEDEMA [None]
  - ANAEMIA [None]
  - CARDIAC FAILURE [None]
  - CREPITATIONS [None]
  - DYSPNOEA [None]
  - FATIGUE [None]
  - GENERAL PHYSICAL HEALTH DETERIORATION [None]
  - PALLOR [None]
  - PULMONARY EMBOLISM [None]
